FAERS Safety Report 7807615-9 (Version None)
Quarter: 2011Q4

REPORT INFORMATION
  Report Type: 
  Country: None (occurrence: None)
  Receive Date: 20111011
  Receipt Date: 20111003
  Transmission Date: 20120403
  Serious: Yes (Hospitalization)
  Sender: FDA-Public Use
  Company Number: CN-GILEAD-2011-0042433

PATIENT

DRUGS (2)
  1. ADEFOVIR DIPIVOXIL KIT [Suspect]
     Indication: HEPATITIS B
     Dosage: 10 MG, QD
     Dates: start: 20080320, end: 20110701
  2. LAMIVUDINE [Concomitant]
     Indication: HEPATITIS B
     Dates: start: 20110704

REACTIONS (1)
  - BLOOD CREATINE PHOSPHOKINASE INCREASED [None]
